FAERS Safety Report 7194444-5 (Version None)
Quarter: 2010Q4

REPORT INFORMATION
  Report Type: 
  Country: None (occurrence: None)
  Receive Date: 20101223
  Receipt Date: 20101214
  Transmission Date: 20110411
  Serious: Yes (Hospitalization)
  Sender: FDA-Public Use
  Company Number: IT-ASTRAZENECA-2010SE60025

PATIENT
  Age: 28267 Day
  Sex: Male

DRUGS (6)
  1. NEXIUM [Suspect]
     Route: 048
     Dates: start: 20101125, end: 20101207
  2. CASODEX [Concomitant]
     Indication: PROSTATE CANCER
  3. EUTIROX [Concomitant]
  4. ZYLORIC [Concomitant]
  5. FOLINA [Concomitant]
  6. IDROPLURIVIT [Concomitant]

REACTIONS (5)
  - DRUG HYPERSENSITIVITY [None]
  - ERYTHEMA [None]
  - EYELID OEDEMA [None]
  - PRURITUS [None]
  - SKIN EXFOLIATION [None]
